FAERS Safety Report 18538921 (Version 1)
Quarter: 2020Q4

REPORT INFORMATION
  Report Type: Other
  Country: GB (occurrence: GB)
  Receive Date: 20201124
  Receipt Date: 20201124
  Transmission Date: 20210114
  Serious: Yes (Other)
  Sender: FDA-Public Use
  Company Number: GB-ROCHE-2679445

PATIENT
  Sex: Female

DRUGS (4)
  1. PREDNISOLONE. [Concomitant]
     Active Substance: PREDNISOLONE
  2. ROACTEMRA [Suspect]
     Active Substance: TOCILIZUMAB
     Indication: RHEUMATOID ARTHRITIS
     Route: 058
     Dates: start: 20200915
  3. COCODAMOL [Concomitant]
     Active Substance: ACETAMINOPHEN\CODEINE PHOSPHATE
  4. CALCIUM CARBONATE. [Concomitant]
     Active Substance: CALCIUM CARBONATE

REACTIONS (10)
  - Headache [Unknown]
  - Rib fracture [Unknown]
  - Weight decreased [Unknown]
  - Pain [Unknown]
  - Multiple injuries [Unknown]
  - Dry mouth [Unknown]
  - Taste disorder [Unknown]
  - Alopecia [Unknown]
  - Dyspnoea [Unknown]
  - Blood cholesterol increased [Unknown]
